FAERS Safety Report 23115439 (Version 1)
Quarter: 2023Q4

REPORT INFORMATION
  Report Type: Spontaneous
  Country: CN (occurrence: CN)
  Receive Date: 20231027
  Receipt Date: 20231027
  Transmission Date: 20240109
  Serious: Yes (Life-Threatening, Hospitalization)
  Sender: FDA-Public Use
  Company Number: CN-MYLANLABS-2023M1110749

PATIENT
  Age: 52 Year
  Sex: Female

DRUGS (1)
  1. AMLODIPINE BESYLATE [Suspect]
     Active Substance: AMLODIPINE BESYLATE
     Indication: Product used for unknown indication
     Dosage: 450 MILLIGRAM, UNK
     Route: 065

REACTIONS (8)
  - Toxicity to various agents [Recovering/Resolving]
  - Multiple organ dysfunction syndrome [Recovering/Resolving]
  - Acute kidney injury [Recovering/Resolving]
  - Hyperlactacidaemia [Recovering/Resolving]
  - Acute hepatic failure [Recovering/Resolving]
  - Distributive shock [Recovering/Resolving]
  - Cardiac failure [Recovering/Resolving]
  - Overdose [Recovering/Resolving]
